FAERS Safety Report 9575586 (Version 1)
Quarter: 2013Q4

REPORT INFORMATION
  Report Type: Spontaneous
  Country: US (occurrence: US)
  Receive Date: 20131001
  Receipt Date: 20131001
  Transmission Date: 20140711
  Serious: No
  Sender: FDA-Public Use
  Company Number: US-AMGEN-USASP2012083806

PATIENT
  Sex: Female
  Weight: 58.96 kg

DRUGS (10)
  1. ENBREL [Suspect]
     Indication: PRODUCT USED FOR UNKNOWN INDICATION
     Dosage: 50 MG, 2 TIMES/WK
     Route: 058
  2. ORENCIA [Concomitant]
     Indication: RHEUMATOID ARTHRITIS
     Dosage: 250 MG, UNK
  3. ORENCIA [Concomitant]
     Indication: PSORIATIC ARTHROPATHY
  4. IRON [Concomitant]
     Dosage: 325 MG, UNK
  5. OXYCODONE [Concomitant]
     Dosage: 5 MG, UNK
  6. OXYCONTIN [Concomitant]
     Dosage: 30 MG, CR
  7. FLEXERIL                           /00428402/ [Concomitant]
     Dosage: 10 MG, UNK
  8. AMBIEN [Concomitant]
     Dosage: 5 MG, UNK
  9. OCELLA [Concomitant]
     Dosage: 3-0.03 MG
  10. LEVOTHYROXINE [Concomitant]
     Dosage: 500 MUG, UNK

REACTIONS (1)
  - Drug ineffective [Unknown]
